FAERS Safety Report 9891885 (Version 2)
Quarter: 2014Q1

REPORT INFORMATION
  Report Type: Report from Study
  Country: CA (occurrence: CA)
  Receive Date: 20140212
  Receipt Date: 20140212
  Transmission Date: 20141002
  Serious: Yes (Disabling, Other)
  Sender: FDA-Public Use
  Company Number: PHHY2011CA80940

PATIENT
  Age: 82 Year
  Sex: Female
  Weight: 51 kg

DRUGS (9)
  1. ACLASTA/ZOLEDRONATE [Suspect]
     Indication: OSTEOPOROSIS
     Route: 042
     Dates: start: 20091006
  2. ACLASTA/ZOLEDRONATE [Suspect]
     Route: 042
     Dates: start: 20100916
  3. ACLASTA/ZOLEDRONATE [Suspect]
     Route: 042
     Dates: start: 20110916
  4. ASA [Concomitant]
     Route: 048
  5. SPERSIN [Concomitant]
     Dosage: 1 DF, UNK
     Route: 048
  6. SYMBICOCT [Concomitant]
     Dosage: 2 DF (200), BID
  7. FERROUS SULPHATE [Concomitant]
     Dosage: 300 MG, QD
  8. EURO-D [Concomitant]
     Dosage: 10000 UL, 1X WEEKLY
     Dates: start: 201009
  9. CAL-500 [Concomitant]
     Dosage: 500 MG, BID
     Route: 048
     Dates: start: 200409

REACTIONS (3)
  - Breast cancer [Recovered/Resolved with Sequelae]
  - Compression fracture [Unknown]
  - Tremor [Unknown]
